FAERS Safety Report 11006298 (Version 1)
Quarter: 2015Q2

REPORT INFORMATION
  Report Type: Spontaneous
  Country: US (occurrence: US)
  Receive Date: 20150409
  Receipt Date: 20150409
  Transmission Date: 20150821
  Serious: No
  Sender: FDA-Public Use
  Company Number: US-ALLERGAN-1404746US

PATIENT
  Sex: Female

DRUGS (3)
  1. LATISSE [Suspect]
     Active Substance: BIMATOPROST
     Indication: PRODUCT USED FOR UNKNOWN INDICATION
     Dosage: UNK
     Dates: start: 20140307, end: 20140310
  2. LATISSE [Suspect]
     Active Substance: BIMATOPROST
     Dosage: UNK
     Dates: start: 20140212, end: 20140224
  3. FACE CREAM NOS [Concomitant]
     Active Substance: COSMETICS
     Indication: SKIN WRINKLING

REACTIONS (1)
  - Eye swelling [Unknown]
